FAERS Safety Report 4795206-6 (Version None)
Quarter: 2005Q4

REPORT INFORMATION
  Report Type: 
  Country: None (occurrence: None)
  Receive Date: 20051006
  Receipt Date: 20051006
  Transmission Date: 20060501
  Serious: No
  Sender: FDA-Public Use
  Company Number: None

PATIENT
  Age: 53 Year
  Sex: Male
  Weight: 69.8 kg

DRUGS (8)
  1. PROPOFOL [Suspect]
     Indication: INTUBATION
     Dosage: 20 ML/MIN IV
     Route: 042
     Dates: start: 20050910, end: 20050916
  2. ALBUTEROL [Concomitant]
  3. CASPOFUNGIN [Concomitant]
  4. FENTANYL [Concomitant]
  5. FUROSEMIDE [Concomitant]
  6. LINEZOLID [Concomitant]
  7. PANTOPRAZOLE [Concomitant]
  8. ZOSYN [Concomitant]

REACTIONS (2)
  - BLOOD ALKALINE PHOSPHATASE INCREASED [None]
  - BLOOD TRIGLYCERIDES INCREASED [None]
